FAERS Safety Report 5515931-9 (Version None)
Quarter: 2007Q4

REPORT INFORMATION
  Report Type: 
  Country: None (occurrence: None)
  Receive Date: 20071114
  Receipt Date: 20071106
  Transmission Date: 20080405
  Serious: Yes (Other)
  Sender: FDA-Public Use
  Company Number: PHEH2007US14487

PATIENT
  Sex: Female

DRUGS (7)
  1. TRILEPTAL [Suspect]
     Indication: CONVULSION
     Dosage: 1500 MG/DAY
     Route: 048
     Dates: start: 19990101
  2. DEPAKOTE [Concomitant]
  3. LAMICTAL [Concomitant]
  4. ALLEGRA D 24 HOUR [Concomitant]
  5. ZYRTEC [Concomitant]
  6. PATANOL [Concomitant]
  7. FLONASE [Concomitant]

REACTIONS (2)
  - OPTIC NERVE DISORDER [None]
  - VISUAL ACUITY REDUCED [None]
